FAERS Safety Report 23576392 (Version 1)
Quarter: 2024Q1

REPORT INFORMATION
  Report Type: Spontaneous
  Country: US (occurrence: None)
  Receive Date: 20240228
  Receipt Date: 20240228
  Transmission Date: 20240410
  Serious: Yes (Other)
  Sender: FDA-Public Use
  Company Number: None

PATIENT
  Age: 54 Year
  Sex: Female
  Weight: 81 kg

DRUGS (2)
  1. HYDROCODONE [Suspect]
     Active Substance: HYDROCODONE
     Indication: Pain management
     Dates: start: 20050701, end: 20240227
  2. Womens daily vitamin [Concomitant]

REACTIONS (2)
  - Withdrawal syndrome [None]
  - Product prescribing issue [None]

NARRATIVE: CASE EVENT DATE: 20240227
